FAERS Safety Report 7761279-1 (Version None)
Quarter: 2011Q3

REPORT INFORMATION
  Report Type: 
  Country: None (occurrence: None)
  Receive Date: 20110920
  Receipt Date: 20110908
  Transmission Date: 20111222
  Serious: Yes (Life-Threatening, Hospitalization)
  Sender: FDA-Public Use
  Company Number: JP-JNJFOC-20110902699

PATIENT
  Sex: Female

DRUGS (5)
  1. PACETCOOL [Concomitant]
     Indication: ENTEROCOLITIS
     Route: 041
     Dates: start: 20110821, end: 20110824
  2. LEVOFLOXACIN [Suspect]
     Indication: ENTEROCOLITIS
     Route: 048
     Dates: start: 20110824, end: 20110827
  3. LACTEC [Concomitant]
     Indication: ENTEROCOLITIS
     Route: 041
     Dates: start: 20110822, end: 20110831
  4. PHYSIO [Concomitant]
     Indication: ENTEROCOLITIS
     Route: 041
     Dates: start: 20110821, end: 20110824
  5. LACTEC [Concomitant]
     Route: 041
     Dates: start: 20110821, end: 20110821

REACTIONS (3)
  - RENAL FAILURE [None]
  - PLATELET COUNT DECREASED [None]
  - ANAEMIA [None]
